FAERS Safety Report 22099446 (Version 3)
Quarter: 2023Q1

REPORT INFORMATION
  Report Type: Report from Study
  Country: US (occurrence: US)
  Receive Date: 20230315
  Receipt Date: 20230329
  Transmission Date: 20230417
  Serious: Yes (Death)
  Sender: FDA-Public Use
  Company Number: US-JNJFOC-20230330459

PATIENT
  Age: 27 Year
  Sex: Female

DRUGS (8)
  1. SPRAVATO [Suspect]
     Active Substance: ESKETAMINE
     Indication: Depression
     Dosage: ^56 MG, 4 TOTAL DOSES^, THERAPY START DATE WAS ALSO REPORTED AS 01-OCT-2022
     Dates: start: 20220926, end: 20221208
  2. SPRAVATO [Suspect]
     Active Substance: ESKETAMINE
     Indication: Major depression
     Dosage: ^84 MG, 8 TOTAL DOSES^
     Dates: start: 20221215, end: 20230202
  3. SEROQUEL [Concomitant]
     Active Substance: QUETIAPINE FUMARATE
     Indication: Major depression
  4. SEROQUEL [Concomitant]
     Active Substance: QUETIAPINE FUMARATE
     Dosage: END DATE-AT TIME OF DEATH
     Route: 048
     Dates: start: 20230125
  5. ATIVAN [Concomitant]
     Active Substance: LORAZEPAM
     Indication: Anxiety
     Dosage: END DATE- AT TIME OF DEATH
     Route: 048
     Dates: start: 20221229
  6. CELEXA [Concomitant]
     Active Substance: CITALOPRAM HYDROBROMIDE
     Indication: Major depression
     Dosage: END DATE- AT TIME OF DEATH
     Route: 048
     Dates: start: 20220928
  7. HYDROXYZINE [Concomitant]
     Active Substance: HYDROXYZINE HYDROCHLORIDE
     Indication: Insomnia
     Dosage: END DATE- AT TIME OF DEATH
     Route: 048
     Dates: start: 20220928
  8. PRAZOSIN [Concomitant]
     Active Substance: PRAZOSIN
     Indication: Blood pressure measurement
     Dosage: END DATE-AT TIME OF DEATH
     Route: 048
     Dates: start: 20230125

REACTIONS (2)
  - Completed suicide [Fatal]
  - Intentional overdose [Fatal]

NARRATIVE: CASE EVENT DATE: 20230101
